FAERS Safety Report 9471094 (Version 2)
Quarter: 2014Q1

REPORT INFORMATION
  Report Type: Spontaneous
  Country: US (occurrence: US)
  Receive Date: 20130822
  Receipt Date: 20140130
  Transmission Date: 20141002
  Serious: Yes (Hospitalization)
  Sender: FDA-Public Use
  Company Number: US-B.I. PHARMACEUTICALS,INC./RIDGEFIELD-2013-BI-25630BP

PATIENT
  Sex: Male
  Weight: 97.34 kg

DRUGS (10)
  1. PRADAXA [Suspect]
     Indication: ANTICOAGULANT THERAPY
     Dosage: 300 MG
     Route: 048
     Dates: start: 20110812, end: 20111205
  2. B-COMPLEX [Concomitant]
  3. OMEG-3 FISH OIL [Concomitant]
  4. MULTIVITAMIN [Concomitant]
  5. ATORVASTATIN [Concomitant]
     Dosage: 20 MG
     Route: 048
  6. MELOXICAM [Concomitant]
     Dosage: 50 MG
     Route: 048
  7. NEXIUM [Concomitant]
     Dosage: 40 MG
     Route: 048
  8. METOPROLOL SUCCINATE [Concomitant]
     Route: 048
  9. FLECAINIDE [Concomitant]
  10. NASONEX [Concomitant]

REACTIONS (2)
  - Subdural haematoma [Unknown]
  - Coagulopathy [Unknown]
